FAERS Safety Report 22079656 (Version 2)
Quarter: 2023Q1

REPORT INFORMATION
  Report Type: Other
  Country: CN (occurrence: None)
  Receive Date: 20230309
  Receipt Date: 20230329
  Transmission Date: 20230418
  Serious: Yes (Other)
  Sender: FDA-Public Use
  Company Number: CN-ROCHE-3303867

PATIENT
  Sex: Female

DRUGS (1)
  1. GAVRETO [Suspect]
     Active Substance: PRALSETINIB
     Indication: Lung neoplasm malignant
     Route: 048
     Dates: start: 20220115

REACTIONS (9)
  - Hepatorenal failure [Recovering/Resolving]
  - Hypogeusia [Recovering/Resolving]
  - Hypoaesthesia oral [Recovering/Resolving]
  - Dermatophytosis of nail [Recovering/Resolving]
  - Constipation [Recovering/Resolving]
  - Hypertension [Recovered/Resolved]
  - Anaemia [Recovering/Resolving]
  - Face oedema [Recovering/Resolving]
  - Asthenia [Recovering/Resolving]

NARRATIVE: CASE EVENT DATE: 20220115
